FAERS Safety Report 14624341 (Version 1)
Quarter: 2018Q1

REPORT INFORMATION
  Report Type: Report from Study
  Country: US (occurrence: US)
  Receive Date: 20180312
  Receipt Date: 20180312
  Transmission Date: 20180509
  Serious: Yes (Disabling, Other)
  Sender: FDA-Public Use
  Company Number: US-AMGEN-USASL2017179841

PATIENT
  Age: 65 Year
  Sex: Female

DRUGS (1)
  1. REPATHA [Suspect]
     Active Substance: EVOLOCUMAB
     Indication: TYPE IIA HYPERLIPIDAEMIA
     Dosage: 140 MG, Q2WK
     Route: 065
     Dates: start: 201708

REACTIONS (7)
  - Contusion [Recovered/Resolved]
  - Cardiac dysfunction [Not Recovered/Not Resolved]
  - Arthralgia [Unknown]
  - Procedural pain [Not Recovered/Not Resolved]
  - Injection site bruising [Recovered/Resolved]
  - Coronary artery occlusion [Not Recovered/Not Resolved]
  - Disability [Unknown]

NARRATIVE: CASE EVENT DATE: 2017
